FAERS Safety Report 18564139 (Version 1)
Quarter: 2020Q4

REPORT INFORMATION
  Report Type: Spontaneous
  Country: US (occurrence: US)
  Receive Date: 20201130
  Receipt Date: 20201130
  Transmission Date: 20210114
  Serious: No
  Sender: FDA-Public Use
  Company Number: None

PATIENT
  Age: 63 Year
  Sex: Male
  Weight: 81.8 kg

DRUGS (1)
  1. LUMASON [Suspect]
     Active Substance: SULFUR HEXAFLUORIDE

REACTIONS (6)
  - Hypoaesthesia [None]
  - Nausea [None]
  - Hyperhidrosis [None]
  - Feeling hot [None]
  - Flushing [None]
  - Rash [None]

NARRATIVE: CASE EVENT DATE: 20201124
